FAERS Safety Report 8409237-8 (Version None)
Quarter: 2012Q2

REPORT INFORMATION
  Report Type: 
  Country: None (occurrence: None)
  Receive Date: 20120604
  Receipt Date: 20120525
  Transmission Date: 20120825
  Serious: Yes (Other)
  Sender: FDA-Public Use
  Company Number: GB-ALLERGAN-1207433US

PATIENT
  Sex: Female

DRUGS (2)
  1. OZURDEX [Suspect]
     Indication: MACULAR OEDEMA
     Dosage: 0.7 MG, SINGLE
     Route: 031
  2. OZURDEX [Suspect]
     Indication: RETINAL VEIN OCCLUSION

REACTIONS (2)
  - ENDOPHTHALMITIS [None]
  - VISUAL ACUITY REDUCED [None]
